FAERS Safety Report 9665857 (Version 1)
Quarter: 2013Q4

REPORT INFORMATION
  Report Type: Spontaneous
  Country: GB (occurrence: GB)
  Receive Date: 20131104
  Receipt Date: 20131104
  Transmission Date: 20140711
  Serious: Yes (Disabling, Other)
  Sender: FDA-Public Use
  Company Number: PHHY2013GB119588

PATIENT
  Age: 72 Year
  Sex: Female
  Weight: 106 kg

DRUGS (15)
  1. RAMIPRIL [Suspect]
     Indication: HYPERTENSION
     Dosage: 1.25 MG, QD
     Route: 048
     Dates: start: 20110412
  2. RAMIPRIL [Suspect]
     Dosage: 2.5 MG, QD
     Route: 048
     Dates: start: 20110714, end: 20110909
  3. PREDNISOLONE [Concomitant]
     Dosage: 5 MG, UNK
     Route: 048
  4. FLUNISOLIDE [Concomitant]
     Dosage: 25 UG, UNK
     Route: 045
  5. FENTALIS [Concomitant]
     Dosage: 25 UG, QD
     Route: 062
  6. METRONIDAZOLE [Concomitant]
  7. CALCEOS [Concomitant]
     Route: 048
  8. QVAR [Concomitant]
     Dosage: 100 UG, UNK
     Route: 055
  9. VENTOLIN [Concomitant]
     Dosage: 100 UG, UNK
     Route: 055
  10. SIMVASTATIN [Concomitant]
     Dosage: 20 MG, UNK
     Route: 048
  11. CO-CODAMOL [Concomitant]
     Dosage: UNK (30MG AND 500MG)
  12. SEREVENT [Concomitant]
     Dosage: 25 UG, UNK
     Route: 055
  13. OMEPRAZOLE [Concomitant]
     Dosage: 20 MG, UNK
     Route: 048
  14. CLOPIDOGREL [Concomitant]
     Dosage: 75 MG, UNK
     Route: 048
  15. ALENDRONIC ACID [Concomitant]
     Dosage: 70 MG, UNK
     Route: 048

REACTIONS (15)
  - Oral pain [Recovering/Resolving]
  - Glossodynia [Recovering/Resolving]
  - Diplopia [Recovered/Resolved with Sequelae]
  - Visual impairment [Recovering/Resolving]
  - Cerebrovascular disorder [Recovering/Resolving]
  - Abdominal pain [Recovering/Resolving]
  - Nerve injury [Recovered/Resolved with Sequelae]
  - Asthenia [Recovering/Resolving]
  - Heart rate increased [Recovering/Resolving]
  - Fatigue [Recovering/Resolving]
  - Sleep disorder [Recovering/Resolving]
  - Hyperhidrosis [Recovering/Resolving]
  - Dyspnoea [Recovering/Resolving]
  - Cough [Recovering/Resolving]
  - Headache [Recovering/Resolving]
